FAERS Safety Report 4721894-6 (Version None)
Quarter: 2005Q3

REPORT INFORMATION
  Report Type: 
  Country: None (occurrence: None)
  Receive Date: 20050721
  Receipt Date: 20050531
  Transmission Date: 20060218
  Serious: No
  Sender: FDA-Public Use
  Company Number: US-BRISTOL-MYERS SQUIBB COMPANY-12988069

PATIENT
  Age: 85 Year
  Sex: Male
  Weight: 66 kg

DRUGS (6)
  1. COUMADIN [Suspect]
     Indication: HEART VALVE REPLACEMENT
     Dosage: 5 MG/D 4 TIMES PER WEEK, 7.5 MG/D 3 TIMES PER WEEK
     Dates: start: 19940101
  2. ENALAPRIL [Concomitant]
  3. LUPRON [Concomitant]
  4. COREG [Concomitant]
  5. VITAMIN E [Concomitant]
     Dosage: 5-6 YEARS
  6. ASCORBIC ACID [Concomitant]
     Dosage: 5-6 YEARS

REACTIONS (3)
  - ASTHENIA [None]
  - FATIGUE [None]
  - SLEEP DISORDER [None]
